FAERS Safety Report 9224412 (Version 1)
Quarter: 2013Q2

REPORT INFORMATION
  Report Type: Spontaneous
  Country: US (occurrence: None)
  Receive Date: 20130409
  Receipt Date: 20130409
  Transmission Date: 20140414
  Serious: No
  Sender: FDA-Public Use
  Company Number: None

PATIENT
  Sex: Female
  Weight: 81.65 kg

DRUGS (1)
  1. GABAPENTIN [Suspect]
     Dosage: 1 CAP QD PO HS FOR 5 DAYS, 2 CAPS QD PO, 3 CAPS QD HS
     Route: 048
     Dates: start: 20130311

REACTIONS (3)
  - Cough [None]
  - Dysphonia [None]
  - Blood glucose increased [None]
